FAERS Safety Report 15393455 (Version 1)
Quarter: 2018Q3

REPORT INFORMATION
  Report Type: Other
  Country: US (occurrence: US)
  Receive Date: 20180917
  Receipt Date: 20180917
  Transmission Date: 20181010
  Serious: No
  Sender: FDA-Public Use
  Company Number: US-LEADIANT BIOSCIENCES INC-2017STPI000824

PATIENT
  Sex: Male

DRUGS (3)
  1. LAMOTRIGINE. [Concomitant]
     Active Substance: LAMOTRIGINE
  2. KEPPRA [Concomitant]
     Active Substance: LEVETIRACETAM
  3. MATULANE [Suspect]
     Active Substance: PROCARBAZINE HYDROCHLORIDE
     Indication: BRAIN NEOPLASM MALIGNANT
     Dosage: 150 MG, QD
     Dates: start: 20170830

REACTIONS (2)
  - Nausea [Unknown]
  - Paraesthesia [Unknown]

NARRATIVE: CASE EVENT DATE: 2017
